FAERS Safety Report 17604658 (Version 1)
Quarter: 2020Q1

REPORT INFORMATION
  Report Type: Spontaneous
  Country: US (occurrence: US)
  Receive Date: 20200331
  Receipt Date: 20200331
  Transmission Date: 20200409
  Serious: No
  Sender: FDA-Public Use
  Company Number: US-PFIZER INC-2020131672

PATIENT
  Age: 52 Year
  Sex: Female

DRUGS (4)
  1. IBRANCE [Suspect]
     Active Substance: PALBOCICLIB
     Indication: BREAST CANCER
     Dosage: 125 MG, DAILY (1 DAILY FOR 21 DAYS)
     Route: 048
     Dates: start: 20200204
  2. VITAMIN C [Concomitant]
     Active Substance: ASCORBIC ACID
     Dosage: 1000 MG, UNK
  3. BIOTIN [Concomitant]
     Active Substance: BIOTIN
     Dosage: 2500 MC
  4. VITAMIN D3 [Concomitant]
     Active Substance: CHOLECALCIFEROL
     Dosage: 10 UG, UNK

REACTIONS (5)
  - Red blood cell count abnormal [Unknown]
  - Neutrophil count abnormal [Unknown]
  - White blood cell count abnormal [Unknown]
  - Fatigue [Unknown]
  - Platelet count abnormal [Unknown]
